APPROVED DRUG PRODUCT: CARBAMAZEPINE
Active Ingredient: CARBAMAZEPINE
Strength: 100MG
Dosage Form/Route: TABLET, CHEWABLE;ORAL
Application: A071940 | Product #001
Applicant: JUBILANT CADISTA PHARMACEUTICALS INC
Approved: Feb 1, 1988 | RLD: No | RS: No | Type: DISCN